FAERS Safety Report 8960602 (Version 2)
Quarter: 2013Q1

REPORT INFORMATION
  Report Type: Spontaneous
  Country: GB (occurrence: None)
  Receive Date: 20121130
  Receipt Date: 20121206
  Transmission Date: 20140127
  Serious: Yes (Other)
  Sender: FDA-Public Use
  Company Number: 2012AP004026

PATIENT
  Age: 57 Year
  Sex: Male

DRUGS (2)
  1. RAMIPRIL [Suspect]
     Route: 048
  2. RAMIPRIL [Suspect]
     Route: 048

REACTIONS (3)
  - Hypertension [None]
  - Drug ineffective [None]
  - Drug tolerance [None]
